FAERS Safety Report 10841049 (Version 1)
Quarter: 2015Q1

REPORT INFORMATION
  Report Type: Spontaneous
  Country: GB (occurrence: None)
  Receive Date: 20150218
  Receipt Date: 20150218
  Transmission Date: 20150721
  Serious: Yes (Other)
  Sender: FDA-Public Use
  Company Number: FK201500802

PATIENT
  Age: 47 Year
  Sex: Female

DRUGS (5)
  1. PREDNISOLONE. [Concomitant]
     Active Substance: PREDNISOLONE
  2. SALBUTAMOL [Concomitant]
     Active Substance: ALBUTEROL
  3. CARBOPLATIN. [Suspect]
     Active Substance: CARBOPLATIN
     Indication: LUNG NEOPLASM MALIGNANT
     Route: 042
     Dates: start: 20150115
  4. SERETIDE [Concomitant]
     Active Substance: FLUTICASONE FUROATE\SALMETEROL XINAFOATE
  5. ZAPONEX (CLOZAPINE) (CLOZAPINE) [Suspect]
     Active Substance: CLOZAPINE
     Route: 048
     Dates: start: 20090320

REACTIONS (9)
  - Product use issue [None]
  - Platelet count increased [None]
  - Thrombocytosis [None]
  - Neutropenia [None]
  - Antipsychotic drug level increased [None]
  - White blood cell count increased [None]
  - Neutrophil count increased [None]
  - Leukopenia [None]
  - Small cell lung cancer [None]

NARRATIVE: CASE EVENT DATE: 20150115
